FAERS Safety Report 4533586-7 (Version None)
Quarter: 2004Q4

REPORT INFORMATION
  Report Type: 
  Country: None (occurrence: None)
  Receive Date: 20041203
  Receipt Date: 20040713
  Transmission Date: 20050328
  Serious: Yes (Hospitalization, Other)
  Sender: FDA-Public Use
  Company Number: 2004047359

PATIENT
  Sex: Male

DRUGS (3)
  1. VIAGRA [Suspect]
     Indication: ERECTILE DYSFUNCTION
     Dosage: 100 MG (100 MG, AS NEEDED), ORAL
     Route: 048
     Dates: end: 20040101
  2. ZOLOFT [Suspect]
     Indication: DEPRESSION
  3. CANNABIS (CANNABIS) [Suspect]
     Indication: ILL-DEFINED DISORDER

REACTIONS (3)
  - DEPRESSION [None]
  - PRIAPISM [None]
  - SCAR [None]
